FAERS Safety Report 9153578 (Version 1)
Quarter: 2013Q1

REPORT INFORMATION
  Report Type: Spontaneous
  Country: US (occurrence: US)
  Receive Date: 20130311
  Receipt Date: 20130311
  Transmission Date: 20140127
  Serious: No
  Sender: FDA-Public Use
  Company Number: US-BAYER-2013-027137

PATIENT
  Sex: Male
  Weight: 124.72 kg

DRUGS (3)
  1. BETASERON [Suspect]
     Indication: MULTIPLE SCLEROSIS
     Dosage: 0.3 MG, QOD
     Route: 058
     Dates: start: 2011, end: 2012
  2. NEXIUM [Concomitant]
  3. PREDNISONE [Concomitant]

REACTIONS (1)
  - Influenza like illness [Unknown]
